FAERS Safety Report 12419050 (Version 1)
Quarter: 2016Q2

REPORT INFORMATION
  Report Type: Spontaneous
  Country: US (occurrence: None)
  Receive Date: 20160527
  Receipt Date: 20160527
  Transmission Date: 20160815
  Serious: No
  Sender: FDA-Public Use
  Company Number: None

PATIENT
  Age: 23 Year
  Sex: Female
  Weight: 61.24 kg

DRUGS (1)
  1. AMPHETAMINE SALTS [Suspect]
     Active Substance: AMPHETAMINE ASPARTATE\AMPHETAMINE SULFATE\DEXTROAMPHETAMINE SACCHARATE\DEXTROAMPHETAMINE SULFATE
     Indication: ATTENTION DEFICIT/HYPERACTIVITY DISORDER
     Route: 048
     Dates: start: 20160526, end: 20160526

REACTIONS (9)
  - Intentional product use issue [None]
  - Drug dispensing error [None]
  - Hyperphagia [None]
  - Product substitution issue [None]
  - Anger [None]
  - Drug ineffective [None]
  - Impaired work ability [None]
  - Disturbance in attention [None]
  - Somnolence [None]

NARRATIVE: CASE EVENT DATE: 20160526
